FAERS Safety Report 5739878-8 (Version None)
Quarter: 2008Q2

REPORT INFORMATION
  Report Type: 
  Country: None (occurrence: None)
  Receive Date: 20080516
  Receipt Date: 20080506
  Transmission Date: 20081010
  Serious: Yes (Hospitalization, Other)
  Sender: FDA-Public Use
  Company Number: US-JNJFOC-20080501729

PATIENT
  Sex: Male
  Weight: 99.79 kg

DRUGS (10)
  1. FENTANYL TRANSDERMAL SYSTEM [Suspect]
     Indication: PAIN
     Route: 062
  2. HYDROCODONE BITARTRATE [Concomitant]
     Indication: BREAKTHROUGH PAIN
     Route: 048
  3. ROBAXIN [Concomitant]
     Indication: MUSCLE SPASMS
     Route: 048
  4. PAXIL [Concomitant]
     Indication: NERVOUSNESS
     Route: 048
  5. XANAX [Concomitant]
     Indication: ANXIETY
     Route: 048
  6. PHENERGAN [Concomitant]
     Indication: NAUSEA
     Dosage: AS NEEDED
     Route: 048
  7. SINGULAIR [Concomitant]
     Indication: MULTIPLE ALLERGIES
     Route: 048
  8. AMBIEN CR [Concomitant]
     Route: 048
  9. ALBUTEROL [Concomitant]
     Indication: ASTHMA
     Route: 055
  10. IPRATROPIUM BROMIDE/ALBUTEROL SULPHATE [Concomitant]
     Indication: ASTHMA
     Dosage: 0.5/3 MG
     Route: 055

REACTIONS (3)
  - CEREBROVASCULAR ACCIDENT [None]
  - DRUG INEFFECTIVE [None]
  - INCORRECT DRUG ADMINISTRATION DURATION [None]
